FAERS Safety Report 25404934 (Version 1)
Quarter: 2025Q2

REPORT INFORMATION
  Report Type: Spontaneous
  Country: US (occurrence: US)
  Receive Date: 20250606
  Receipt Date: 20250606
  Transmission Date: 20250716
  Serious: No
  Sender: PIERRE FABRE MEDICAMENT
  Company Number: US-PFM-2024-04859

PATIENT
  Sex: Male
  Weight: 6.748 kg

DRUGS (6)
  1. HEMANGEOL [Suspect]
     Active Substance: PROPRANOLOL HYDROCHLORIDE
     Indication: Haemangioma
     Dosage: 0.5 ML, BID (2/DAY)
  2. HEMANGEOL [Suspect]
     Active Substance: PROPRANOLOL HYDROCHLORIDE
     Dosage: 0.9 ML, BID (2/DAY)
  3. HEMANGEOL [Suspect]
     Active Substance: PROPRANOLOL HYDROCHLORIDE
     Dosage: 1.4 ML, BID (2/DAY)
  4. HEMANGEOL [Suspect]
     Active Substance: PROPRANOLOL HYDROCHLORIDE
     Dosage: 1.9 ML, BID (2/DAY)
  5. HEMANGEOL [Suspect]
     Active Substance: PROPRANOLOL HYDROCHLORIDE
     Dosage: 2.4 ML, BID (2/DAY)
  6. HEMANGEOL [Suspect]
     Active Substance: PROPRANOLOL HYDROCHLORIDE
     Dosage: 2.7 ML, BID (2/DAY)

REACTIONS (4)
  - Infantile spitting up [Recovering/Resolving]
  - Insomnia [Recovering/Resolving]
  - Drug titration error [Unknown]
  - Off label use [Unknown]
